FAERS Safety Report 10201797 (Version 2)
Quarter: 2019Q1

REPORT INFORMATION
  Report Type: Spontaneous
  Country: FR (occurrence: FR)
  Receive Date: 20140528
  Receipt Date: 20190326
  Transmission Date: 20190417
  Serious: Yes (Hospitalization)
  Sender: FDA-Public Use
  Company Number: FR-TEVA-484065ISR

PATIENT
  Age: 27 Year
  Sex: Female

DRUGS (2)
  1. NIFLUMIC ACID [Suspect]
     Active Substance: NIFLUMIC ACID
     Route: 065
  2. IBUPROFEN. [Suspect]
     Active Substance: IBUPROFEN
     Route: 065

REACTIONS (3)
  - Hepatocellular injury [Recovered/Resolved]
  - Acute generalised exanthematous pustulosis [Recovered/Resolved]
  - Agranulocytosis [Recovered/Resolved]
